FAERS Safety Report 19450054 (Version 1)
Quarter: 2021Q2

REPORT INFORMATION
  Report Type: Report from Study
  Country: None (occurrence: GB)
  Receive Date: 20210622
  Receipt Date: 20210622
  Transmission Date: 20210717
  Serious: Yes (Death, Other)
  Sender: FDA-Public Use
  Company Number: GB-ULTRAGENYX PHARMACEUTICAL INC.-GB-UGNX-21-00186

PATIENT
  Sex: Female

DRUGS (1)
  1. TRIHEPTANOIN. [Suspect]
     Active Substance: TRIHEPTANOIN
     Indication: LONG-CHAIN ACYL-COENZYME A DEHYDROGENASE DEFICIENCY

REACTIONS (2)
  - Sepsis [Fatal]
  - Death [Fatal]
